FAERS Safety Report 5717929-4 (Version None)
Quarter: 2008Q2

REPORT INFORMATION
  Report Type: 
  Country: None (occurrence: None)
  Receive Date: 20080425
  Receipt Date: 20080416
  Transmission Date: 20081010
  Serious: Yes (Other)
  Sender: FDA-Public Use
  Company Number: FR-ASTRAZENECA-2008CG00592

PATIENT
  Age: 47 Year
  Sex: Female

DRUGS (2)
  1. ARIMIDEX [Suspect]
     Indication: BREAST CANCER FEMALE
     Route: 048
     Dates: start: 20030101
  2. HERCEPTIN [Concomitant]
     Indication: BREAST CANCER FEMALE

REACTIONS (3)
  - ARTHRALGIA [None]
  - AUTOIMMUNE THYROIDITIS [None]
  - FOOT FRACTURE [None]
